FAERS Safety Report 4517887-4 (Version None)
Quarter: 2004Q4

REPORT INFORMATION
  Report Type: 
  Country: None (occurrence: None)
  Receive Date: 20041203
  Receipt Date: 20041124
  Transmission Date: 20050328
  Serious: Yes (Hospitalization)
  Sender: FDA-Public Use
  Company Number: FR-JNJFOC-20041106080

PATIENT
  Age: 33 Year
  Sex: Male

DRUGS (3)
  1. TOPALGIC [Suspect]
     Route: 049
     Dates: start: 20040630, end: 20040710
  2. BI-PROFENID [Suspect]
     Route: 049
     Dates: start: 20040630, end: 20040710
  3. MIOREL [Suspect]
     Dates: start: 20040630, end: 20040710

REACTIONS (5)
  - CHILLS [None]
  - MENINGITIS [None]
  - NAUSEA [None]
  - PAPILLOEDEMA [None]
  - SCOTOMA [None]
